FAERS Safety Report 4980462-1 (Version None)
Quarter: 2006Q2

REPORT INFORMATION
  Report Type: 
  Country: None (occurrence: None)
  Receive Date: 20060424
  Receipt Date: 20060112
  Transmission Date: 20061013
  Serious: Yes (Other)
  Sender: FDA-Public Use
  Company Number: US-GLAXOSMITHKLINE-A0589294A

PATIENT
  Age: 52 Year
  Sex: Male

DRUGS (4)
  1. BEXXAR [Suspect]
     Indication: NON-HODGKIN'S LYMPHOMA
     Route: 042
     Dates: start: 20050601, end: 20050601
  2. MULTIVITAMIN [Concomitant]
  3. VITAMIN B-12 [Concomitant]
  4. HERBAL SUPPLEMENTS [Concomitant]

REACTIONS (2)
  - ANAEMIA [None]
  - BONE MARROW TOXICITY [None]
